FAERS Safety Report 8891177 (Version 2)
Quarter: 2013Q1

REPORT INFORMATION
  Report Type: Spontaneous
  Country: US (occurrence: US)
  Receive Date: 20121107
  Receipt Date: 20130128
  Transmission Date: 20140127
  Serious: Yes (Other)
  Sender: FDA-Public Use
  Company Number: US-PFIZER INC-2012275027

PATIENT
  Age: 56 Year
  Sex: Female
  Weight: 83.9 kg

DRUGS (7)
  1. GEODON [Suspect]
     Indication: PANIC ATTACK
     Dosage: 50 MG, 2X/DAY
     Dates: end: 201210
  2. GEODON [Suspect]
     Indication: HALLUCINATION, AUDITORY
  3. ALPRAZOLAM [Suspect]
     Indication: PANIC ATTACK
     Dosage: 0.5 MG, AS NEEDED
  4. SEROQUEL XR [Suspect]
     Indication: PANIC ATTACK
     Dosage: 400 MG, DAILY
  5. SEROQUEL XR [Suspect]
     Indication: HALLUCINATION, AUDITORY
  6. SEROQUEL [Suspect]
     Indication: PANIC ATTACK
     Dosage: 200MG IN THE MORNING AND IN NOON, 400MG IN THE NIGHT
  7. SEROQUEL [Suspect]
     Indication: HALLUCINATION, AUDITORY

REACTIONS (7)
  - Off label use [Unknown]
  - Dyspnoea [Unknown]
  - Hypertension [Recovered/Resolved]
  - Blood glucose increased [Recovered/Resolved]
  - Panic attack [Not Recovered/Not Resolved]
  - Muscle spasms [Unknown]
  - Withdrawal syndrome [Unknown]
